FAERS Safety Report 6282259-1 (Version None)
Quarter: 2009Q3

REPORT INFORMATION
  Report Type: 
  Country: None (occurrence: None)
  Receive Date: 20090722
  Receipt Date: 20090715
  Transmission Date: 20100115
  Serious: No
  Sender: FDA-Public Use
  Company Number: 20097094

PATIENT
  Sex: Female

DRUGS (1)
  1. LIORESAL [Suspect]
     Indication: MUSCLE SPASTICITY
     Dosage: 742.4 MCG, DAILY, INTRATHECAL
     Route: 037

REACTIONS (2)
  - IMPLANT SITE EFFUSION [None]
  - MEDICAL DEVICE COMPLICATION [None]
